FAERS Safety Report 9927702 (Version 1)
Quarter: 2014Q1

REPORT INFORMATION
  Report Type: Report from Study
  Country: US (occurrence: US)
  Receive Date: 20140227
  Receipt Date: 20140227
  Transmission Date: 20141002
  Serious: Yes (Hospitalization)
  Sender: FDA-Public Use
  Company Number: US-ROCHE-1329813

PATIENT
  Age: 67 Year
  Sex: Female

DRUGS (8)
  1. LUCENTIS [Suspect]
     Indication: RETINAL VEIN OCCLUSION
     Route: 050
  2. LUCENTIS [Suspect]
     Indication: CYSTOID MACULAR OEDEMA
  3. ALCAINE [Concomitant]
  4. LIDOCAINE [Concomitant]
  5. BETADINE [Concomitant]
  6. POLYMYXIN [Concomitant]
     Dosage: X 3 DAYS
     Route: 065
  7. TEARDROPS [Concomitant]
  8. ATROPINE [Concomitant]

REACTIONS (7)
  - Headache [Unknown]
  - Dermatitis [Unknown]
  - Visual impairment [Unknown]
  - Vision blurred [Unknown]
  - Retinal cyst [Unknown]
  - Visual acuity reduced [Unknown]
  - Cataract [Unknown]
